FAERS Safety Report 6711688-4 (Version None)
Quarter: 2010Q2

REPORT INFORMATION
  Report Type: 
  Country: None (occurrence: None)
  Receive Date: 20100505
  Receipt Date: 20100427
  Transmission Date: 20101027
  Serious: Yes (Other)
  Sender: FDA-Public Use
  Company Number: B0649837A

PATIENT
  Sex: Female

DRUGS (3)
  1. ALLI [Suspect]
     Route: 048
     Dates: start: 20100412, end: 20100417
  2. LEVOTHYROXINE SODIUM [Suspect]
     Route: 065
  3. SUPPLEMENT [Suspect]

REACTIONS (2)
  - NAUSEA [None]
  - RECTAL HAEMORRHAGE [None]
